FAERS Safety Report 12309546 (Version 1)
Quarter: 2016Q2

REPORT INFORMATION
  Report Type: Spontaneous
  Country: US (occurrence: US)
  Receive Date: 20160427
  Receipt Date: 20160427
  Transmission Date: 20160815
  Serious: Yes (Other)
  Sender: FDA-Public Use
  Company Number: US-ASTRAZENECA-2016SE43011

PATIENT
  Age: 77 Year
  Sex: Male
  Weight: 72.6 kg

DRUGS (8)
  1. CRESTOR [Suspect]
     Active Substance: ROSUVASTATIN CALCIUM
     Indication: AORTIC VALVE REPLACEMENT
     Route: 048
     Dates: start: 2012, end: 20160419
  2. CRESTOR [Suspect]
     Active Substance: ROSUVASTATIN CALCIUM
     Indication: MYOCARDIAL INFARCTION
     Route: 048
     Dates: start: 20160419
  3. WARFARIN [Concomitant]
     Active Substance: WARFARIN
     Route: 048
  4. METOPROLOL SUCCINATE. [Suspect]
     Active Substance: METOPROLOL SUCCINATE
     Indication: CARDIAC DISORDER
     Route: 048
     Dates: end: 20160409
  5. CRESTOR [Suspect]
     Active Substance: ROSUVASTATIN CALCIUM
     Indication: AORTIC VALVE REPLACEMENT
     Route: 048
     Dates: start: 20160419
  6. CRESTOR [Suspect]
     Active Substance: ROSUVASTATIN CALCIUM
     Indication: MYOCARDIAL INFARCTION
     Route: 048
     Dates: start: 2012, end: 20160419
  7. ASPIRIN. [Concomitant]
     Active Substance: ASPIRIN
     Indication: CARDIAC DISORDER
     Route: 048
  8. SPIRONOLACTONE. [Concomitant]
     Active Substance: SPIRONOLACTONE
     Indication: CARDIAC DISORDER
     Route: 048

REACTIONS (12)
  - Squamous cell carcinoma [Unknown]
  - Appendicitis [Unknown]
  - Blood cholesterol decreased [Unknown]
  - Off label use [Unknown]
  - Heart rate decreased [Unknown]
  - Intentional product misuse [Unknown]
  - Hypertension [Unknown]
  - Body height decreased [Unknown]
  - Basal cell carcinoma [Unknown]
  - Amnesia [Unknown]
  - Off label use [Unknown]
  - Product use issue [Unknown]

NARRATIVE: CASE EVENT DATE: 2012
